FAERS Safety Report 16085122 (Version 2)
Quarter: 2019Q1

REPORT INFORMATION
  Report Type: Spontaneous
  Country: US (occurrence: US)
  Receive Date: 20190318
  Receipt Date: 20190325
  Transmission Date: 20190418
  Serious: Yes (Disabling)
  Sender: FDA-Public Use
  Company Number: US-TEVA-2019-US-1025209

PATIENT

DRUGS (3)
  1. DOCETAXEL INJECTION CONCENTRATE [Suspect]
     Active Substance: DOCETAXEL
     Route: 065
     Dates: start: 20140310, end: 20140423
  2. TAXOTERE [Suspect]
     Active Substance: DOCETAXEL
     Route: 065
     Dates: start: 20140310, end: 20140423
  3. DOCETAXEL INJECTION CONCENTRATE [Suspect]
     Active Substance: DOCETAXEL
     Route: 065
     Dates: start: 20140310, end: 20140423

REACTIONS (2)
  - Alopecia [Not Recovered/Not Resolved]
  - Alopecia [Unknown]
